FAERS Safety Report 5451839-5 (Version None)
Quarter: 2007Q3

REPORT INFORMATION
  Report Type: 
  Country: None (occurrence: None)
  Receive Date: 20070912
  Receipt Date: 20070820
  Transmission Date: 20080115
  Serious: Yes (Other)
  Sender: FDA-Public Use
  Company Number: 2007330588

PATIENT
  Sex: Female

DRUGS (2)
  1. SUDAFED PE SINUS DAY +  RELIEF [Suspect]
     Dosage: ORAL
     Route: 048
  2. SUDAFED PE SINUS + NIGHT RELIEF [Suspect]
     Dosage: ORAL
     Route: 048

REACTIONS (3)
  - FATIGUE [None]
  - FEELING ABNORMAL [None]
  - HEADACHE [None]
